FAERS Safety Report 7993566-6 (Version None)
Quarter: 2011Q4

REPORT INFORMATION
  Report Type: 
  Country: None (occurrence: None)
  Receive Date: 20111219
  Receipt Date: 20111212
  Transmission Date: 20120403
  Serious: No
  Sender: FDA-Public Use
  Company Number: US-B.I. PHARMACEUTICALS,INC./RIDGEFIELD-2011-BP-27883BP

PATIENT
  Sex: Female

DRUGS (11)
  1. GARLIC [Concomitant]
     Indication: SUPPLEMENTATION THERAPY
     Route: 048
  2. MULTIPLE VITAMIN [Concomitant]
     Indication: VITAMIN SUPPLEMENTATION
     Route: 048
  3. ATENOLOL [Concomitant]
     Indication: HYPERTENSION
     Route: 048
  4. VITAMIN C [Concomitant]
     Indication: VITAMIN SUPPLEMENTATION
     Route: 048
  5. SPIRIVA [Suspect]
     Indication: CHRONIC OBSTRUCTIVE PULMONARY DISEASE
     Dosage: 18 MCG
     Route: 055
     Dates: start: 20110401
  6. LISINOPRIL [Concomitant]
     Indication: HYPERTENSION
     Route: 048
  7. HYDROCHLORTHIAZINDE [Concomitant]
     Indication: CARDIAC FAILURE CONGESTIVE
     Route: 048
  8. OMEGA 3/6 FISH OIL [Concomitant]
     Indication: SUPPLEMENTATION THERAPY
     Route: 048
  9. PROAIR HFA [Concomitant]
     Indication: CHRONIC OBSTRUCTIVE PULMONARY DISEASE
  10. MYOTEIN PROTEIN POWDER [Concomitant]
     Indication: SUPPLEMENTATION THERAPY
     Route: 048
  11. VITAMIN D [Concomitant]
     Indication: VITAMIN SUPPLEMENTATION
     Route: 048

REACTIONS (2)
  - VITREOUS FLOATERS [None]
  - OCULAR HYPERAEMIA [None]
